FAERS Safety Report 8588420-5 (Version None)
Quarter: 2012Q3

REPORT INFORMATION
  Report Type: 
  Country: None (occurrence: None)
  Receive Date: 20120731
  Receipt Date: 20120716
  Transmission Date: 20120928
  Serious: Yes (Hospitalization, Other)
  Sender: FDA-Public Use
  Company Number: 2012-000517

PATIENT
  Age: 70 Year
  Sex: Female

DRUGS (29)
  1. ACTONEL [Suspect]
     Indication: OSTEOPOROSIS
     Dosage: 35 MG ONCE WEEKLY, ORAL
     Route: 048
     Dates: start: 20021008, end: 20110101
  2. NORVASC [Concomitant]
  3. CALCIUM CARBONATE [Concomitant]
  4. SERTRALINE HYDROCHLORIDE [Concomitant]
  5. HYDROCHLOROTHIAZIDE [Concomitant]
  6. ENALAPRIL MALEATE [Concomitant]
  7. ATENOLOL [Concomitant]
  8. IBUPROFEN [Concomitant]
  9. PREMARIN [Concomitant]
  10. METHYLPREDNISOLONE [Concomitant]
  11. DOXYCYCLINE [Concomitant]
  12. HYDROCORTISONE VALERATE (HYDROCORTISONE VALERATE) [Concomitant]
  13. AMITRIPTYLINE HCL [Concomitant]
  14. CYCLOBENZAPRINE [Concomitant]
  15. CLINDAMYCIN [Concomitant]
  16. PREVIDENT (SODIUM FLUORIDE) [Concomitant]
  17. PRILOSEC [Concomitant]
  18. BEXTRA /01401501/ (VALDECOXIB) [Concomitant]
  19. SALSALATE (SALSALATE) [Concomitant]
  20. ULTRAM [Concomitant]
  21. PREDNISONE TAB [Concomitant]
  22. CEPHALEXIN /00145501/ (CEFALEXIN) [Concomitant]
  23. ADVAIR HFA [Concomitant]
  24. VIOXX [Concomitant]
  25. NEXIUM [Concomitant]
  26. CHLORHEXIDINE GLUCONATE [Concomitant]
  27. SPORANOX [Concomitant]
  28. SMZ-TMP (SULFAMETHOXAZOLE, TRIMETHOPRIM) [Concomitant]
  29. DIAZEPAM [Concomitant]

REACTIONS (8)
  - ABASIA [None]
  - ARTHRITIS [None]
  - FEMUR FRACTURE [None]
  - HYPOAESTHESIA [None]
  - COMMINUTED FRACTURE [None]
  - BURSITIS [None]
  - CATARACT OPERATION [None]
  - PAIN IN EXTREMITY [None]
